FAERS Safety Report 20950085 (Version 2)
Quarter: 2022Q2

REPORT INFORMATION
  Report Type: Spontaneous
  Country: BR (occurrence: BR)
  Receive Date: 20220613
  Receipt Date: 20220622
  Transmission Date: 20220720
  Serious: Yes (Hospitalization)
  Sender: FDA-Public Use
  Company Number: BR-SA-SAC20220223001289

PATIENT
  Age: 39 Year
  Sex: Female

DRUGS (9)
  1. ENOXAPARIN SODIUM [Suspect]
     Active Substance: ENOXAPARIN SODIUM
     Indication: Prophylaxis
     Dosage: UNK, QD
     Route: 065
     Dates: start: 20220213, end: 20220214
  2. NORFLOXACIN [Concomitant]
     Active Substance: NORFLOXACIN
  3. CLONAZEPAM [Concomitant]
     Active Substance: CLONAZEPAM
  4. CLOPIDOGREL [Concomitant]
     Active Substance: CLOPIDOGREL BISULFATE
  5. OMEPRAZOLE [Concomitant]
     Active Substance: OMEPRAZOLE
  6. ENOXAPARIN [Concomitant]
     Active Substance: ENOXAPARIN
  7. ROSUVASTATIN [Concomitant]
     Active Substance: ROSUVASTATIN
  8. SCOPOLAMINE [Concomitant]
     Active Substance: SCOPOLAMINE
  9. ASPIRIN [Concomitant]
     Active Substance: ASPIRIN

REACTIONS (3)
  - Chest pain [Recovered/Resolved]
  - Hospitalisation [Recovered/Resolved]
  - Headache [Recovered/Resolved]

NARRATIVE: CASE EVENT DATE: 20220213
